FAERS Safety Report 13956544 (Version 1)
Quarter: 2017Q3

REPORT INFORMATION
  Report Type: Spontaneous
  Country: NL (occurrence: NL)
  Receive Date: 20170911
  Receipt Date: 20170911
  Transmission Date: 20171128
  Serious: Yes (Other)
  Sender: FDA-Public Use
  Company Number: NL-PFIZER INC-2017385719

PATIENT
  Age: 66 Year
  Sex: Female
  Weight: 66 kg

DRUGS (3)
  1. AMLODIPINE BESILATE [Suspect]
     Active Substance: AMLODIPINE BESYLATE
     Indication: HYPERTENSION
     Dosage: 10 MG, 1X/DAY
     Route: 048
     Dates: start: 20170801, end: 20170825
  2. NEXIUM [Concomitant]
     Active Substance: ESOMEPRAZOLE MAGNESIUM
     Dosage: 40 MG, 1X/DAY
     Route: 048
     Dates: start: 20151109
  3. MACROGOL EN ELEKTROLYTEN [Concomitant]
     Dosage: 13.7 G, 1X/DAY
     Route: 048
     Dates: start: 20151109

REACTIONS (3)
  - Stomatitis [Recovering/Resolving]
  - Erythema nodosum [Recovering/Resolving]
  - Therapeutic response unexpected [Recovering/Resolving]

NARRATIVE: CASE EVENT DATE: 201708
